FAERS Safety Report 10663564 (Version 1)
Quarter: 2014Q4

REPORT INFORMATION
  Report Type: Report from Study
  Country: US (occurrence: US)
  Receive Date: 20141219
  Receipt Date: 20141219
  Transmission Date: 20150529
  Serious: Yes (Hospitalization, Other)
  Sender: FDA-Public Use
  Company Number: US-ROCHE-1507850

PATIENT
  Age: 64 Year
  Sex: Female

DRUGS (6)
  1. DOCELL [Concomitant]
     Indication: ENDOMETRIAL CANCER
     Route: 042
     Dates: start: 20141107
  2. DOCELL [Concomitant]
     Dosage: NOW ON 28 DAY CYCLE.
     Route: 042
  3. DOCELL [Concomitant]
     Route: 042
     Dates: start: 20141205
  4. AVASTIN [Suspect]
     Active Substance: BEVACIZUMAB
     Route: 042
     Dates: start: 20141121
  5. AVASTIN [Suspect]
     Active Substance: BEVACIZUMAB
     Dosage: PATIENT IS NOW ON A 28 DAY CYCLE.
     Route: 042
     Dates: start: 20141205
  6. AVASTIN [Suspect]
     Active Substance: BEVACIZUMAB
     Indication: ENDOMETRIAL CANCER
     Route: 042
     Dates: start: 20141107

REACTIONS (3)
  - Headache [Not Recovered/Not Resolved]
  - Pulmonary embolism [Recovering/Resolving]
  - Confusional state [Not Recovered/Not Resolved]

NARRATIVE: CASE EVENT DATE: 20141107
